FAERS Safety Report 17930865 (Version 4)
Quarter: 2020Q3

REPORT INFORMATION
  Report Type: Report from Study
  Country: US (occurrence: US)
  Receive Date: 20200623
  Receipt Date: 20200820
  Transmission Date: 20201103
  Serious: Yes (Other)
  Sender: FDA-Public Use
  Company Number: NVSC2020US176065

PATIENT
  Age: 57 Year
  Sex: Female
  Weight: 68.6 kg

DRUGS (2)
  1. COSENTYX [Suspect]
     Active Substance: SECUKINUMAB
     Indication: PSORIATIC ARTHROPATHY
     Dosage: 150 MG, QMO
     Route: 058
     Dates: start: 20200224
  2. VITAMIN D [Concomitant]
     Active Substance: VITAMIN D NOS
     Indication: VITAMIN D DEFICIENCY
     Dosage: 50000 OT, QW
     Route: 048
     Dates: start: 20200225

REACTIONS (7)
  - Rash [Not Recovered/Not Resolved]
  - Pruritus [Unknown]
  - Rash vesicular [Unknown]
  - Skin oedema [Unknown]
  - Urticaria [Unknown]
  - Oropharyngeal discomfort [Unknown]
  - Psoriatic arthropathy [Unknown]

NARRATIVE: CASE EVENT DATE: 20200224
